FAERS Safety Report 5580026-5 (Version None)
Quarter: 2007Q4

REPORT INFORMATION
  Report Type: 
  Country: None (occurrence: None)
  Receive Date: 20071228
  Receipt Date: 20071217
  Transmission Date: 20080405
  Serious: Yes (Other)
  Sender: FDA-Public Use
  Company Number: 2007S1013450

PATIENT
  Age: 34 Year
  Sex: Female

DRUGS (2)
  1. MINAX (METOPROLOL TARTRATE) (50 MG) [Suspect]
     Indication: SINUS TACHYCARDIA
     Dosage: 100 MG; TWICE A DAY; ORAL; 50 MG; TWICE A DAY; ORAL
     Route: 048
     Dates: start: 20060101, end: 20071101
  2. MINAX (METOPROLOL TARTRATE) (50 MG) [Suspect]
     Indication: SINUS TACHYCARDIA
     Dosage: 100 MG; TWICE A DAY; ORAL; 50 MG; TWICE A DAY; ORAL
     Route: 048
     Dates: start: 20071101

REACTIONS (10)
  - CRYING [None]
  - DIARRHOEA [None]
  - DYSPNOEA [None]
  - EMOTIONAL DISORDER [None]
  - HALLUCINATION, VISUAL [None]
  - INSOMNIA [None]
  - LETHARGY [None]
  - NIGHTMARE [None]
  - STOMACH DISCOMFORT [None]
  - TACHYCARDIA [None]
